FAERS Safety Report 10753827 (Version 1)
Quarter: 2015Q1

REPORT INFORMATION
  Report Type: Report from Study
  Country: FR (occurrence: None)
  Receive Date: 20150129
  Receipt Date: 20150129
  Transmission Date: 20150721
  Serious: Yes (Other)
  Sender: FDA-Public Use
  Company Number: 2015FE00135

PATIENT
  Age: 52 Year
  Sex: Male
  Weight: 88 kg

DRUGS (2)
  1. DEGARELIX [Suspect]
     Active Substance: DEGARELIX
     Indication: PROSTATE CANCER
     Route: 058
     Dates: start: 20140220, end: 20140710
  2. EXFORGE (AMLODIPINE BESILATE, VALSARTAN) [Concomitant]

REACTIONS (1)
  - Amnesia [None]

NARRATIVE: CASE EVENT DATE: 20141128
